FAERS Safety Report 5752274-2 (Version None)
Quarter: 2008Q2

REPORT INFORMATION
  Report Type: 
  Country: None (occurrence: None)
  Receive Date: 20080529
  Receipt Date: 20080522
  Transmission Date: 20081010
  Serious: Yes (Life-Threatening, Hospitalization)
  Sender: FDA-Public Use
  Company Number: JP-BAYER-200810920BYL

PATIENT
  Age: 86 Year
  Sex: Male

DRUGS (6)
  1. AVELOX [Suspect]
     Indication: PYREXIA
     Dosage: TOTAL DAILY DOSE: 400 MG  UNIT DOSE: 400 MG
     Route: 048
     Dates: start: 20080424, end: 20080513
  2. ITRACONAZOLE [Suspect]
     Indication: PYREXIA
     Dosage: TOTAL DAILY DOSE: 100 MG  UNIT DOSE: 50 MG
     Route: 048
     Dates: start: 20080502, end: 20080513
  3. DIGOSIN [Concomitant]
     Indication: ATRIAL FIBRILLATION
     Dosage: TOTAL DAILY DOSE: 0.2 MG  UNIT DOSE: 0.2 MG
     Route: 048
     Dates: end: 20080513
  4. URINORM [Concomitant]
     Indication: HYPERURICAEMIA
     Dosage: TOTAL DAILY DOSE: 50 MG  UNIT DOSE: 50 MG
     Route: 048
     Dates: end: 20080513
  5. TORSEMIDE [Concomitant]
     Indication: CARDIAC FAILURE CHRONIC
     Dosage: TOTAL DAILY DOSE: 4 MG  UNIT DOSE: 4 MG
     Route: 048
     Dates: end: 20080513
  6. WARFARIN SODIUM [Concomitant]
     Indication: CARDIAC FAILURE CHRONIC
     Dosage: TOTAL DAILY DOSE: 0.5 MG  UNIT DOSE: 1 MG
     Route: 048
     Dates: end: 20080513

REACTIONS (3)
  - LONG QT SYNDROME [None]
  - VENTRICULAR FIBRILLATION [None]
  - VENTRICULAR TACHYCARDIA [None]
